FAERS Safety Report 20218043 (Version 1)
Quarter: 2021Q4

REPORT INFORMATION
  Report Type: Spontaneous
  Country: US (occurrence: US)
  Receive Date: 20211222
  Receipt Date: 20211222
  Transmission Date: 20220303
  Serious: No
  Sender: FDA-Public Use
  Company Number: US-MYOVANT SCIENCES GMBH-2021MYSCI1100398

PATIENT
  Age: 44 Year
  Sex: Female

DRUGS (3)
  1. MYFEMBREE [Suspect]
     Active Substance: ESTRADIOL HEMIHYDRATE\NORETHINDRONE ACETATE\RELUGOLIX
     Indication: Uterine leiomyoma
     Dosage: 1 TAB, QD
     Route: 048
     Dates: start: 20210917
  2. IRON [Concomitant]
     Active Substance: IRON
     Indication: Anaemia
     Dosage: 3 UNK, QD
     Route: 065
  3. GERITOL                            /00508001/ [Concomitant]
     Indication: Vitamin supplementation
     Dosage: 1 UNK, QD
     Route: 065

REACTIONS (2)
  - Weight increased [Unknown]
  - Heavy menstrual bleeding [Recovered/Resolved]

NARRATIVE: CASE EVENT DATE: 20211026
